FAERS Safety Report 8434406-0 (Version None)
Quarter: 2012Q2

REPORT INFORMATION
  Report Type: 
  Country: None (occurrence: None)
  Receive Date: 20120613
  Receipt Date: 20120604
  Transmission Date: 20120825
  Serious: Yes (Other)
  Sender: FDA-Public Use
  Company Number: US-AMGEN-USASP2012034810

PATIENT
  Age: 58 Year
  Sex: Male

DRUGS (2)
  1. ENBREL [Suspect]
     Indication: ANKYLOSING SPONDYLITIS
     Dosage: 50 MG, QWK
     Dates: start: 20070304
  2. HUMIRA [Concomitant]
     Dosage: UNK

REACTIONS (11)
  - INJECTION SITE PAIN [None]
  - DRUG INEFFECTIVE [None]
  - ANKYLOSING SPONDYLITIS [None]
  - EXOSTOSIS [None]
  - SPINAL FUSION ACQUIRED [None]
  - APPLICATION SITE PRURITUS [None]
  - INJECTION SITE SWELLING [None]
  - APPLICATION SITE SWELLING [None]
  - INJECTION SITE PRURITUS [None]
  - PSORIASIS [None]
  - APPLICATION SITE PAIN [None]
